FAERS Safety Report 5549349-X (Version None)
Quarter: 2007Q4

REPORT INFORMATION
  Report Type: 
  Country: None (occurrence: None)
  Receive Date: 20071126
  Receipt Date: 20061101
  Transmission Date: 20080405
  Serious: Yes (Other)
  Sender: FDA-Public Use
  Company Number: 2006BH014437

PATIENT
  Age: 56 Year
  Sex: Female
  Weight: 45.4958 kg

DRUGS (1)
  1. DIANEAL [Suspect]
     Indication: RENAL FAILURE CHRONIC
     Dosage: 5 L, IP
     Route: 033

REACTIONS (1)
  - PERITONITIS BACTERIAL [None]
